FAERS Safety Report 21247007 (Version 2)
Quarter: 2022Q4

REPORT INFORMATION
  Report Type: Report from Study
  Country: US (occurrence: US)
  Receive Date: 20220824
  Receipt Date: 20221208
  Transmission Date: 20230113
  Serious: No
  Sender: FDA-Public Use
  Company Number: US-NOVARTISTESTPH-NVSC2022US186934

PATIENT
  Sex: Female
  Weight: 104.3 kg

DRUGS (5)
  1. TREPROSTINIL [Suspect]
     Active Substance: TREPROSTINIL
     Indication: Pulmonary arterial hypertension
     Dosage: 15.5 UNK, CONT (NG/ KG/ ML/ N)
     Route: 058
     Dates: start: 20220331
  2. TREPROSTINIL [Suspect]
     Active Substance: TREPROSTINIL
     Dosage: 15.5 UNK, CONT (NG/ KG/ ML/ N)
     Route: 058
     Dates: start: 20220331
  3. OPSUMIT [Concomitant]
     Active Substance: MACITENTAN
     Indication: Product used for unknown indication
     Dosage: UNK
     Route: 065
  4. SILDENAFIL CITRATE [Concomitant]
     Active Substance: SILDENAFIL CITRATE
     Indication: Product used for unknown indication
     Dosage: UNK
     Route: 065
  5. ORENITRAM [Concomitant]
     Active Substance: TREPROSTINIL
     Indication: Product used for unknown indication
     Dosage: 4 MG, TID
     Route: 065

REACTIONS (5)
  - Gastrooesophageal reflux disease [Unknown]
  - Faeces soft [Unknown]
  - Rash [Unknown]
  - Pruritus [Unknown]
  - Injection site pain [Unknown]
